FAERS Safety Report 14741204 (Version 2)
Quarter: 2018Q2

REPORT INFORMATION
  Report Type: Spontaneous
  Country: GB (occurrence: GB)
  Receive Date: 20180410
  Receipt Date: 20180518
  Transmission Date: 20180711
  Serious: Yes (Other)
  Sender: FDA-Public Use
  Company Number: GB-ELI_LILLY_AND_COMPANY-GB201804001983

PATIENT
  Age: 71 Year
  Sex: Male

DRUGS (6)
  1. ERBITUX [Suspect]
     Active Substance: CETUXIMAB
     Indication: COLORECTAL CANCER METASTATIC
     Dosage: 900 MG, 2/W
     Route: 065
     Dates: start: 20160224
  2. IRINOTECAN [Concomitant]
     Active Substance: IRINOTECAN
     Indication: COLON CANCER METASTATIC
     Dosage: UNK, 2/W
     Route: 042
     Dates: start: 20160224, end: 20170519
  3. FOLINIC ACID [Concomitant]
     Active Substance: LEUCOVORIN
     Indication: COLON CANCER METASTATIC
     Dosage: UNK, 2/W
     Route: 042
     Dates: start: 20160224, end: 20170519
  4. ERBITUX [Suspect]
     Active Substance: CETUXIMAB
     Dosage: 700 MG, 2/W
     Route: 042
     Dates: start: 20160715
  5. ERBITUX [Suspect]
     Active Substance: CETUXIMAB
     Dosage: 650 MG, 2/W
     Route: 042
     Dates: start: 20170302, end: 20170519
  6. 5 FU [Concomitant]
     Active Substance: FLUOROURACIL
     Indication: COLON CANCER METASTATIC
     Dosage: UNK, 2/W
     Route: 042
     Dates: start: 20160224, end: 20170519

REACTIONS (3)
  - Spinal fracture [Not Recovered/Not Resolved]
  - Hip fracture [Recovered/Resolved]
  - Off label use [Unknown]

NARRATIVE: CASE EVENT DATE: 2017
